FAERS Safety Report 9872119 (Version 1)
Quarter: 2014Q1

REPORT INFORMATION
  Report Type: Spontaneous
  Country: US (occurrence: US)
  Receive Date: 20140205
  Receipt Date: 20140205
  Transmission Date: 20141002
  Serious: No
  Sender: FDA-Public Use
  Company Number: US-ALLERGAN-1306953US

PATIENT
  Sex: Female

DRUGS (10)
  1. BOTOX COSMETIC [Suspect]
     Indication: SKIN WRINKLING
     Dosage: UNK, SINGLE
     Route: 030
     Dates: start: 20130311, end: 20130311
  2. BOTOX COSMETIC [Suspect]
     Indication: SKIN WRINKLING
     Dosage: UNK, SINGLE
     Route: 030
     Dates: start: 20130129, end: 20130129
  3. BOTOX COSMETIC [Suspect]
     Indication: SKIN WRINKLING
     Dosage: UNK, SINGLE
     Route: 030
     Dates: start: 20130114, end: 20130114
  4. DYSPORT [Suspect]
     Indication: SKIN WRINKLING
     Dosage: UNK
     Dates: start: 20130221, end: 20130221
  5. DYSPORT [Suspect]
     Indication: SKIN WRINKLING
     Dosage: UNK
     Dates: start: 20130207, end: 20130207
  6. DYSPORT /01136801/ [Suspect]
     Indication: SKIN WRINKLING
  7. XEOMIN [Suspect]
     Indication: SKIN WRINKLING
     Dosage: UNK
     Dates: start: 20130417, end: 20130417
  8. XEOMIN [Suspect]
     Indication: SKIN WRINKLING
  9. XEOMIN [Suspect]
     Indication: SKIN WRINKLING
  10. ALBUTEROL                          /00139501/ [Concomitant]
     Indication: ASTHMA
     Dosage: UNK UNK, PRN
     Route: 048

REACTIONS (2)
  - Wrong technique in drug usage process [Unknown]
  - Drug ineffective [Unknown]
